FAERS Safety Report 9551952 (Version 4)
Quarter: 2013Q4

REPORT INFORMATION
  Report Type: Report from Study
  Country: GB (occurrence: GB)
  Receive Date: 20130925
  Receipt Date: 20131211
  Transmission Date: 20140711
  Serious: Yes (Other)
  Sender: FDA-Public Use
  Company Number: GB-JNJFOC-20130909128

PATIENT
  Age: 67 Year
  Sex: Female

DRUGS (5)
  1. SIMPONI [Suspect]
     Indication: PRODUCT USED FOR UNKNOWN INDICATION
     Route: 058
  2. SIMPONI [Suspect]
     Indication: PRODUCT USED FOR UNKNOWN INDICATION
     Route: 058
     Dates: start: 20130907
  3. METHOTREXATE [Concomitant]
     Indication: PSORIATIC ARTHROPATHY
     Route: 065
  4. FOLIC ACID [Concomitant]
     Indication: PSORIATIC ARTHROPATHY
     Route: 065
  5. BONIVA [Concomitant]
     Indication: OSTEOPOROSIS
     Route: 048

REACTIONS (3)
  - Humerus fracture [Recovering/Resolving]
  - Psoriasis [Recovering/Resolving]
  - Fall [Recovering/Resolving]
